FAERS Safety Report 11871583 (Version 1)
Quarter: 2015Q4

REPORT INFORMATION
  Report Type: Spontaneous
  Country: US (occurrence: None)
  Receive Date: 20151224
  Receipt Date: 20151224
  Transmission Date: 20160305
  Serious: Yes (Hospitalization)
  Sender: FDA-Public Use
  Company Number: None

PATIENT
  Age: 72 Year
  Sex: Female
  Weight: 75.3 kg

DRUGS (1)
  1. PEMBROLIZUMAB. [Suspect]
     Active Substance: PEMBROLIZUMAB
     Indication: DRUG THERAPY
     Dosage: 200 MG?Q 3 WEEKS?INTRAVENOUS
     Route: 042
     Dates: start: 20150603

REACTIONS (3)
  - Treatment noncompliance [None]
  - Compression fracture [None]
  - Fall [None]

NARRATIVE: CASE EVENT DATE: 20151203
